FAERS Safety Report 25790150 (Version 3)
Quarter: 2025Q4

REPORT INFORMATION
  Report Type: Spontaneous
  Country: EU (occurrence: EU)
  Receive Date: 20250911
  Receipt Date: 20251009
  Transmission Date: 20260119
  Serious: No
  Sender: IPSEN BIOPHARMACEUTICALS, INC.
  Company Number: EU-IPSEN Group, Research and Development-2025-21229

PATIENT
  Age: 18 Year
  Sex: Male
  Weight: 55 kg

DRUGS (4)
  1. ODEVIXIBAT SESQUIHYDRATE [Suspect]
     Active Substance: ODEVIXIBAT SESQUIHYDRATE
     Indication: Alagille syndrome
     Dosage: RECOMMENDED DOSAGE 45.5 TO 55.5 KG 6000 ?G/DAY?5 CAPSULES A 1200 ?G DAILY
     Dates: start: 20250121, end: 20250717
  2. URSODIOL [Concomitant]
     Active Substance: URSODIOL
  3. PROPRANOLOL [Concomitant]
     Active Substance: PROPRANOLOL HYDROCHLORIDE
     Dosage: TWICE DAILY
  4. PANTOPRAZOLE [Concomitant]
     Active Substance: PANTOPRAZOLE
     Dosage: ONCE DAILY

REACTIONS (3)
  - Alanine aminotransferase increased [Unknown]
  - Aspartate aminotransferase increased [Unknown]
  - Blood bilirubin increased [Unknown]
